FAERS Safety Report 4680208-0 (Version None)
Quarter: 2005Q2

REPORT INFORMATION
  Report Type: 
  Country: None (occurrence: None)
  Receive Date: 20050531
  Receipt Date: 20041201
  Transmission Date: 20051028
  Serious: Yes (Hospitalization)
  Sender: FDA-Public Use
  Company Number: NL-2004-035919

PATIENT
  Sex: Male

DRUGS (14)
  1. QUADRAMET [Suspect]
     Indication: PROSTATE CANCER METASTATIC
     Dosage: 18.5 MBQ, INTRAVENOUS
     Route: 042
     Dates: start: 20040921, end: 20040921
  2. QUADRAMET [Suspect]
     Indication: PROSTATE CANCER METASTATIC
     Dosage: 18.5 MBQ, INTRAVENOUS
     Route: 042
     Dates: start: 20041005, end: 20041005
  3. ZOMETA [Suspect]
     Indication: PROSTATE CANCER METASTATIC
     Dosage: 4 MG, INTRAVENOUS
     Route: 042
     Dates: start: 20041003, end: 20041003
  4. ZOMETA [Suspect]
     Indication: PROSTATE CANCER METASTATIC
     Dosage: 4 MG, INTRAVENOUS
     Route: 042
     Dates: start: 20041102, end: 20041102
  5. GOSERELIN                     (GOSERELIN) [Concomitant]
  6. CAPTOPRIL  W/HYDROCHLOROTHIAZIDE                             (CAPTOPRI [Concomitant]
  7. IBUPROFEN [Concomitant]
  8. PARACETAMOL [Concomitant]
  9. PANTOPRAZOLE SODIUM [Concomitant]
  10. TAMSULOSIN HCL [Concomitant]
  11. CELECOXIB (CELECOXIB) [Concomitant]
  12. METOCLOPRAMIDE [Concomitant]
  13. MORPHINE [Concomitant]
  14. MAGNESIUM OXIDE            (MAGNESIUM OXIDE) [Concomitant]

REACTIONS (5)
  - BLOOD CREATININE INCREASED [None]
  - BLOOD URINE PRESENT [None]
  - HAEMOGLOBIN DECREASED [None]
  - LYMPHADENOPATHY [None]
  - OBSTRUCTIVE UROPATHY [None]
